FAERS Safety Report 10869500 (Version 2)
Quarter: 2015Q1

REPORT INFORMATION
  Report Type: Spontaneous
  Country: JP (occurrence: JP)
  Receive Date: 20150226
  Receipt Date: 20150311
  Transmission Date: 20150721
  Serious: Yes (Other)
  Sender: FDA-Public Use
  Company Number: JP-009507513-1502JPN008965

PATIENT
  Age: 49 Year
  Sex: Female

DRUGS (8)
  1. DEPAKENE [Concomitant]
     Active Substance: VALPROIC ACID
     Dosage: 200 MG, QD
     Route: 048
     Dates: start: 20150113
  2. REBAMIPIDE [Concomitant]
     Active Substance: REBAMIPIDE
     Route: 048
  3. GOSHUYU-TO [Concomitant]
     Dosage: 7.5 G, QD
     Route: 048
     Dates: start: 20150113
  4. RIZATRIPTAN BENZOATE. [Suspect]
     Active Substance: RIZATRIPTAN BENZOATE
     Dosage: 10 MG, PRN (1 TABLET IN THE MORNING)
     Route: 048
     Dates: start: 20150129, end: 20150130
  5. TERRANAS [Concomitant]
     Dosage: 10 MG, QD
     Route: 048
     Dates: start: 20150113
  6. RIZATRIPTAN BENZOATE. [Suspect]
     Active Substance: RIZATRIPTAN BENZOATE
     Indication: MIGRAINE
     Dosage: 10 MG, PRN
     Route: 048
     Dates: start: 20150113
  7. LOXOPROFEN SODIUM [Concomitant]
     Active Substance: LOXOPROFEN SODIUM
     Dosage: 60 MG, QD (ALSO REPORTED AS PRN)
     Route: 048
  8. RIZATRIPTAN BENZOATE. [Suspect]
     Active Substance: RIZATRIPTAN BENZOATE
     Dosage: 10 MG, PRN (1 TABLET AT NIGHT)
     Route: 048
     Dates: start: 20150118

REACTIONS (1)
  - Cerebral vasoconstriction [Recovered/Resolved]

NARRATIVE: CASE EVENT DATE: 20150130
